FAERS Safety Report 4381885-4 (Version None)
Quarter: 2004Q2

REPORT INFORMATION
  Report Type: 
  Country: None (occurrence: None)
  Receive Date: 20040615
  Receipt Date: 20040603
  Transmission Date: 20050107
  Serious: Yes (Other)
  Sender: FDA-Public Use
  Company Number: USA-2004-0015478

PATIENT
  Age: 52 Year
  Sex: Male

DRUGS (10)
  1. MORPHINE SULFATE [Suspect]
     Dosage: 160 MG, DAILY, ORAL
     Route: 048
     Dates: start: 20030611, end: 20031111
  2. FLUOXETINE HYDROCHLIORIDE (FLUOXETINE HYDROCHLORIDE) [Suspect]
     Indication: PAIN
     Dosage: 20 MG, DAILY, ORAL
     Route: 048
     Dates: end: 20031111
  3. AMITRIPTYLINE HYDROCHLORIDE [Suspect]
  4. IPRATROPIUM BROMIDE [Concomitant]
  5. SALBUTAMOL (SALBUTAMOL) [Concomitant]
  6. PREDNISOLONE [Concomitant]
  7. OMEPRAZOLE [Concomitant]
  8. ROXITHROMYCIN (ROXITHROMYCIN) [Concomitant]
  9. AMPICILLIN [Concomitant]
  10. GABAPENTIN [Concomitant]

REACTIONS (1)
  - SEROTONIN SYNDROME [None]
